FAERS Safety Report 17941884 (Version 7)
Quarter: 2025Q3

REPORT INFORMATION
  Report Type: Spontaneous
  Country: US (occurrence: US)
  Receive Date: 20200624
  Receipt Date: 20250707
  Transmission Date: 20251021
  Serious: No
  Sender: AMGEN
  Company Number: US-PFIZER INC-2020233153

PATIENT
  Age: 64 Year
  Sex: Female
  Weight: 79.38 kg

DRUGS (1)
  1. ENBREL [Suspect]
     Active Substance: ETANERCEPT
     Indication: Rheumatoid arthritis
     Route: 065

REACTIONS (1)
  - Therapeutic product effect decreased [Unknown]
